FAERS Safety Report 11026414 (Version 1)
Quarter: 2015Q2

REPORT INFORMATION
  Report Type: Spontaneous
  Country: US (occurrence: US)
  Receive Date: 20150414
  Receipt Date: 20150414
  Transmission Date: 20150821
  Serious: Yes (Hospitalization, Other)
  Sender: FDA-Public Use
  Company Number: US-UCBSA-091278

PATIENT
  Sex: Female

DRUGS (5)
  1. XYREM [Suspect]
     Active Substance: SODIUM OXYBATE
     Dosage: 4.5 G BID, 500MG/ML
     Route: 048
     Dates: start: 201310
  2. XYREM [Suspect]
     Active Substance: SODIUM OXYBATE
     Dosage: TITRATED DOSE DOSE ADJUSTMENTS 500MG/ML
     Route: 048
     Dates: end: 2010
  3. XYREM [Suspect]
     Active Substance: SODIUM OXYBATE
     Indication: NARCOLEPSY
     Dosage: NIGHTLY
     Route: 048
     Dates: start: 20050404
  4. XYREM [Suspect]
     Active Substance: SODIUM OXYBATE
     Dosage: 2.25 G BID ,500MG/ML
     Route: 048
     Dates: start: 201307, end: 2013
  5. XYREM [Suspect]
     Active Substance: SODIUM OXYBATE
     Dosage: DOSE ADJUSTMENTS 500MG/ML
     Route: 048
     Dates: start: 2013, end: 2013

REACTIONS (7)
  - Economic problem [None]
  - Fatigue [None]
  - Arnold-Chiari malformation [Recovering/Resolving]
  - Multiple injuries [Recovered/Resolved]
  - Memory impairment [Not Recovered/Not Resolved]
  - Cerebral decompression [Recovered/Resolved]
  - Fall [Recovered/Resolved]

NARRATIVE: CASE EVENT DATE: 2006
